FAERS Safety Report 7154116-X (Version None)
Quarter: 2010Q4

REPORT INFORMATION
  Report Type: 
  Country: None (occurrence: None)
  Receive Date: 20101124
  Receipt Date: 20101117
  Transmission Date: 20110411
  Serious: Yes (Hospitalization)
  Sender: FDA-Public Use
  Company Number: BR-001395

PATIENT
  Sex: Male

DRUGS (1)
  1. NAGLAZYME (NAGLAZYME) [Suspect]
     Indication: MUCOPOLYSACCHARIDOSIS VI
     Dosage: (25 MG 1X/WEEK INTRAVENOUS DRIP)
     Route: 041
     Dates: start: 20071107

REACTIONS (1)
  - PNEUMONIA [None]
